FAERS Safety Report 13959320 (Version 9)
Quarter: 2022Q1

REPORT INFORMATION
  Report Type: Spontaneous
  Country: GB (occurrence: GB)
  Receive Date: 20170912
  Receipt Date: 20220328
  Transmission Date: 20220423
  Serious: Yes (Death, Other)
  Sender: FDA-Public Use
  Company Number: PHFR2017GB007471

PATIENT
  Age: 44 Year
  Sex: Female

DRUGS (7)
  1. PREGABALIN [Suspect]
     Active Substance: PREGABALIN
     Indication: Product used for unknown indication
     Dosage: 3 DOSAGE FORM (3 DF, TOTAL)
     Route: 065
     Dates: start: 20161015
  2. PREGABALIN [Suspect]
     Active Substance: PREGABALIN
     Dosage: UNK
     Route: 065
  3. ACETAMINOPHEN [Suspect]
     Active Substance: ACETAMINOPHEN
     Indication: Product used for unknown indication
     Dosage: UNK
     Route: 065
  4. ZOPICLONE [Suspect]
     Active Substance: ZOPICLONE
     Indication: Sleep disorder
     Dosage: 14 DOSAGE FORM (14 DF FOR TWO WEEKS)
     Route: 048
  5. MORPHINE SULFATE [Suspect]
     Active Substance: MORPHINE SULFATE
     Indication: Product used for unknown indication
     Dosage: UNK (6 OR 7 TABLETS)
     Route: 065
     Dates: start: 20161014, end: 20161014
  6. COCODAMOL [Suspect]
     Active Substance: ACETAMINOPHEN\CODEINE PHOSPHATE
     Indication: Analgesic therapy
     Dosage: 28 DF, QD [112 TABLET, FOR TWO WEEKS]
     Route: 048
  7. ACETAMINOPHEN\CODEINE PHOSPHATE [Suspect]
     Active Substance: ACETAMINOPHEN\CODEINE PHOSPHATE
     Indication: Pain
     Dosage: 28 DOSAGE FORM, QD (28 DF, DAILY [112 TABLET, FOR TWO WEEKS]
     Route: 048

REACTIONS (13)
  - Toxicity to various agents [Fatal]
  - Accidental overdose [Fatal]
  - Intentional product misuse [Fatal]
  - Prescription drug used without a prescription [Fatal]
  - Eye pain [Fatal]
  - Vision blurred [Fatal]
  - Dysarthria [Fatal]
  - Gait disturbance [Fatal]
  - Accidental overdose [Fatal]
  - Drug abuse [Fatal]
  - Drug diversion [Not Recovered/Not Resolved]
  - Eye pain [Not Recovered/Not Resolved]
  - Gait disturbance [Not Recovered/Not Resolved]

NARRATIVE: CASE EVENT DATE: 20161001
